FAERS Safety Report 16386799 (Version 3)
Quarter: 2019Q3

REPORT INFORMATION
  Report Type: Spontaneous
  Country: JP (occurrence: JP)
  Receive Date: 20190604
  Receipt Date: 20190829
  Transmission Date: 20191004
  Serious: Yes (Death, Hospitalization, Other)
  Sender: FDA-Public Use
  Company Number: JP-SAKK-2019SA147915AA

PATIENT
  Age: 76 Year
  Sex: Male

DRUGS (4)
  1. JEVTANA [Suspect]
     Active Substance: CABAZITAXEL
     Indication: HORMONE-REFRACTORY PROSTATE CANCER
     Dosage: 25 MG/M2, Q4W
     Route: 041
     Dates: start: 20180712, end: 20180712
  2. PREDNISOLONE. [Concomitant]
     Active Substance: PREDNISOLONE
     Indication: PRODUCT USED FOR UNKNOWN INDICATION
     Route: 065
  3. JEVTANA [Suspect]
     Active Substance: CABAZITAXEL
     Dosage: UNK UNK, Q4W
     Route: 041
     Dates: start: 20180814, end: 20180814
  4. JEVTANA [Suspect]
     Active Substance: CABAZITAXEL
     Dosage: 75% DOSE, Q4W
     Route: 041
     Dates: start: 20181016, end: 20181016

REACTIONS (3)
  - Tuberculosis [Fatal]
  - Disseminated tuberculosis [Fatal]
  - Febrile neutropenia [Recovered/Resolved]

NARRATIVE: CASE EVENT DATE: 2018
